FAERS Safety Report 9718144 (Version 1)
Quarter: 2013Q4

REPORT INFORMATION
  Report Type: Spontaneous
  Country: US (occurrence: US)
  Receive Date: 20131125
  Receipt Date: 20131125
  Transmission Date: 20140711
  Serious: No
  Sender: FDA-Public Use
  Company Number: US-VIVUS-2013V1000052

PATIENT
  Age: 66 Year
  Sex: Female
  Weight: 108.6 kg

DRUGS (21)
  1. QSYMIA 3.75MG/23MG [Suspect]
     Indication: WEIGHT DECREASED
     Route: 048
     Dates: start: 20130117, end: 20130130
  2. QSYMIA 7.5MG/46MG [Suspect]
     Indication: WEIGHT DECREASED
     Route: 048
     Dates: start: 20130131
  3. RESTASIS [Concomitant]
     Indication: DRY EYE
  4. LASIX [Concomitant]
     Indication: PRODUCT USED FOR UNKNOWN INDICATION
     Route: 048
  5. POTASSIUM [Concomitant]
     Indication: PRODUCT USED FOR UNKNOWN INDICATION
     Route: 048
  6. ATENOLOL [Concomitant]
     Indication: BLOOD PRESSURE
     Route: 048
  7. GABAPENTIN [Concomitant]
     Indication: PRURITUS
     Route: 048
  8. GABAPENTIN [Concomitant]
     Route: 048
  9. HYDROXYZINE [Concomitant]
     Indication: PRURITUS
     Route: 048
  10. PRILOSEC [Concomitant]
     Indication: PRODUCT USED FOR UNKNOWN INDICATION
     Route: 048
  11. RANITIDINE [Concomitant]
     Indication: GASTROOESOPHAGEAL REFLUX DISEASE
     Route: 048
  12. LORTAB [Concomitant]
     Indication: PRODUCT USED FOR UNKNOWN INDICATION
     Route: 048
  13. ZANAFLEX [Concomitant]
     Indication: PRODUCT USED FOR UNKNOWN INDICATION
     Route: 048
  14. PERCOCET [Concomitant]
     Indication: PRODUCT USED FOR UNKNOWN INDICATION
     Route: 048
  15. SIMVASTATIN [Concomitant]
     Indication: BLOOD CHOLESTEROL
     Route: 048
  16. ATROVENT [Concomitant]
     Indication: RHINORRHOEA
  17. OMEPRAZOLE [Concomitant]
     Indication: GASTROOESOPHAGEAL REFLUX DISEASE
     Route: 048
  18. MULTIVITAMIN [Concomitant]
     Indication: VITAMIN SUPPLEMENTATION
     Dosage: DAILY DOSE: 1 TABLET,
     Route: 048
  19. CALCIUM PLUS VITAMIN D [Concomitant]
     Indication: OSTEOPOROSIS
     Dosage: DAILY DOSE: 1 TABLET,
     Route: 048
  20. CRANBERRY [Concomitant]
     Indication: VITAMIN SUPPLEMENTATION
     Dosage: DAILY DOSE: 1 TABLET,
     Route: 048
     Dates: start: 2012
  21. FLORAJEN 3 [Concomitant]
     Indication: COLITIS
     Dosage: DAILY DOSE: 1 TABLET,
     Route: 048
     Dates: start: 2012

REACTIONS (7)
  - Dyspnoea exertional [Not Recovered/Not Resolved]
  - Acne [Not Recovered/Not Resolved]
  - Somnolence [Unknown]
  - Laryngitis [Recovered/Resolved]
  - Dizziness [Not Recovered/Not Resolved]
  - Fatigue [Unknown]
  - Blood potassium decreased [Unknown]
